FAERS Safety Report 5274265-0 (Version None)
Quarter: 2007Q1

REPORT INFORMATION
  Report Type: 
  Country: None (occurrence: None)
  Receive Date: 20070323
  Receipt Date: 20070314
  Transmission Date: 20070707
  Serious: Yes (Other)
  Sender: FDA-Public Use
  Company Number: US-JNJFOC-20070303736

PATIENT
  Age: 15 Year
  Sex: Female
  Weight: 62.14 kg

DRUGS (3)
  1. TOPAMAX [Suspect]
     Route: 048
  2. TOPAMAX [Suspect]
     Indication: EPILEPSY
     Route: 048
  3. METFORMIN HCL [Concomitant]
     Indication: POLYCYSTIC OVARIES
     Route: 048

REACTIONS (4)
  - DEPRESSION [None]
  - GENERALISED ANXIETY DISORDER [None]
  - OBSESSIVE-COMPULSIVE DISORDER [None]
  - SOCIAL PHOBIA [None]
